FAERS Safety Report 5677462-5 (Version None)
Quarter: 2008Q1

REPORT INFORMATION
  Report Type: 
  Country: None (occurrence: None)
  Receive Date: 20080324
  Receipt Date: 20080312
  Transmission Date: 20080703
  Serious: Yes (Other)
  Sender: FDA-Public Use
  Company Number: IT-PFIZER INC-2008022954

PATIENT
  Sex: Female

DRUGS (1)
  1. SOLU-MEDROL [Suspect]
     Indication: ENDOCRINE OPHTHALMOPATHY
     Dosage: DAILY DOSE:500MG
     Dates: start: 20080225, end: 20080225

REACTIONS (3)
  - ANGIOEDEMA [None]
  - ERYTHEMA [None]
  - THROAT TIGHTNESS [None]
